FAERS Safety Report 5299576-4 (Version None)
Quarter: 2007Q2

REPORT INFORMATION
  Report Type: 
  Country: None (occurrence: None)
  Receive Date: 20070417
  Receipt Date: 20070405
  Transmission Date: 20071010
  Serious: Yes (Other)
  Sender: FDA-Public Use
  Company Number: PHEH2007US04317

PATIENT
  Sex: Female

DRUGS (2)
  1. ZELNORM [Suspect]
     Indication: IRRITABLE BOWEL SYNDROME
     Dosage: 6 MG, TID
     Dates: start: 20040101, end: 20070405
  2. ADDERALL 10 [Suspect]

REACTIONS (3)
  - DECREASED APPETITE [None]
  - TACHYCARDIA [None]
  - WEIGHT DECREASED [None]
